FAERS Safety Report 9460764 (Version 3)
Quarter: 2013Q3

REPORT INFORMATION
  Report Type: Spontaneous
  Country: US (occurrence: US)
  Receive Date: 20130815
  Receipt Date: 20130903
  Transmission Date: 20140515
  Serious: Yes (Other)
  Sender: FDA-Public Use
  Company Number: US-GLAXOSMITHKLINE-A1037752A

PATIENT
  Age: 67 Year
  Sex: Male

DRUGS (1)
  1. FLONASE [Suspect]
     Indication: PRODUCT USED FOR UNKNOWN INDICATION
     Dosage: 50MCG UNKNOWN
     Route: 045
     Dates: start: 20090203

REACTIONS (3)
  - Retinal tear [Recovered/Resolved]
  - Eye operation [Recovered/Resolved]
  - Visual acuity reduced [Recovered/Resolved]
